FAERS Safety Report 18711723 (Version 1)
Quarter: 2021Q1

REPORT INFORMATION
  Report Type: Spontaneous
  Country: US (occurrence: US)
  Receive Date: 20210107
  Receipt Date: 20210107
  Transmission Date: 20210419
  Serious: Yes (Other)
  Sender: FDA-Public Use
  Company Number: US-BAYER-2021-000272

PATIENT
  Age: 63 Year
  Sex: Female

DRUGS (1)
  1. ACETYLSALICYLIC ACID [Suspect]
     Active Substance: ASPIRIN

REACTIONS (4)
  - Contraindicated product administered [None]
  - Pancreatic haemorrhage [None]
  - Gastrointestinal haemorrhage [None]
  - Faeces discoloured [None]
